FAERS Safety Report 22313705 (Version 1)
Quarter: 2023Q2

REPORT INFORMATION
  Report Type: Other
  Country: US (occurrence: None)
  Receive Date: 20230512
  Receipt Date: 20230512
  Transmission Date: 20230722
  Serious: Yes (Death)
  Sender: FDA-Public Use
  Company Number: US-ROCHE-3346994

PATIENT
  Age: 90 Year
  Sex: Male

DRUGS (6)
  1. RITUXAN [Suspect]
     Active Substance: RITUXIMAB
     Indication: Rheumatoid arthritis
     Route: 041
  2. ELIQUIS [Concomitant]
     Active Substance: APIXABAN
  3. COREG [Concomitant]
     Active Substance: CARVEDILOL
  4. ADVIL [Concomitant]
     Active Substance: IBUPROFEN
  5. ZOCOR [Concomitant]
     Active Substance: SIMVASTATIN
  6. PREDNISONE [Concomitant]
     Active Substance: PREDNISONE

REACTIONS (1)
  - Illness [Fatal]
